FAERS Safety Report 4333331-4 (Version None)
Quarter: 2004Q2

REPORT INFORMATION
  Report Type: 
  Country: None (occurrence: None)
  Receive Date: 20040406
  Receipt Date: 20040310
  Transmission Date: 20050107
  Serious: Yes (Hospitalization, Disabling, Other)
  Sender: FDA-Public Use
  Company Number: US-MERCK-0403USA01179

PATIENT
  Sex: Male

DRUGS (7)
  1. LIPITOR [Concomitant]
     Route: 065
  2. IMODIUM [Concomitant]
     Route: 065
  3. MERCAPTOPURINE [Concomitant]
     Route: 065
  4. ASACOL [Concomitant]
     Route: 065
  5. PREDNISONE [Concomitant]
     Route: 065
  6. ZOCOR [Suspect]
     Indication: CORONARY ARTERY DISEASE
     Route: 048
     Dates: end: 20040301
  7. ZOCOR [Suspect]
     Route: 048

REACTIONS (2)
  - ADVERSE DRUG REACTION [None]
  - COLITIS ULCERATIVE [None]
